FAERS Safety Report 16051922 (Version 1)
Quarter: 2019Q1

REPORT INFORMATION
  Report Type: Spontaneous
  Country: PK (occurrence: PK)
  Receive Date: 20190308
  Receipt Date: 20190308
  Transmission Date: 20190418
  Serious: Yes (Hospitalization, Other)
  Sender: FDA-Public Use
  Company Number: PK-SA-2019SA059000

PATIENT
  Age: 61 Year
  Sex: Female

DRUGS (5)
  1. COVEL [Concomitant]
     Indication: HYPERSENSITIVITY
     Dosage: 10/160 MG, QD
     Route: 048
  2. LANTUS SOLOSTAR [Suspect]
     Active Substance: INSULIN GLARGINE
     Indication: DIABETES MELLITUS
     Dosage: 28 IU, HS
     Route: 058
     Dates: start: 20180901, end: 20190201
  3. TOUJEO [Suspect]
     Active Substance: INSULIN GLARGINE
     Indication: DIABETES MELLITUS
     Dosage: Q30 IU, HS
     Route: 058
     Dates: start: 20190201
  4. NEBIX [Concomitant]
     Indication: HYPERTENSION
     Dosage: 2.5 MG, HS
     Route: 048
  5. CEFSPAN [Concomitant]
     Active Substance: CEFIXIME
     Indication: ANTIBIOTIC THERAPY
     Dosage: 200 MG, BID
     Route: 048

REACTIONS (6)
  - Glycosylated haemoglobin increased [Unknown]
  - Gastrointestinal inflammation [Unknown]
  - White blood cell count increased [Unknown]
  - Lower respiratory tract infection [Unknown]
  - Hyperglycaemia [Not Recovered/Not Resolved]
  - Gastrointestinal disorder [Recovered/Resolved]

NARRATIVE: CASE EVENT DATE: 20190213
